FAERS Safety Report 10047314 (Version 1)
Quarter: 2014Q1

REPORT INFORMATION
  Report Type: Spontaneous
  Country: US (occurrence: US)
  Receive Date: 20140331
  Receipt Date: 20140331
  Transmission Date: 20141002
  Serious: Yes (Other)
  Sender: FDA-Public Use
  Company Number: US-MYLANLABS-2014S1000982

PATIENT
  Age: 51 Year
  Sex: Male
  Weight: 61.24 kg

DRUGS (6)
  1. FENTANYL TRANSDERMAL SYSTEM [Suspect]
     Indication: PAIN
     Dosage: CHANGED Q48H
     Route: 062
     Dates: start: 2008, end: 20140111
  2. NORCO [Concomitant]
     Indication: PAIN
  3. XANAX [Concomitant]
     Indication: NERVOUSNESS
  4. TESTOSTERONE [Concomitant]
  5. FINASTERIDE [Concomitant]
     Indication: MICTURITION DISORDER
  6. FLOMAX /01280302/ [Concomitant]
     Indication: MICTURITION DISORDER

REACTIONS (1)
  - Drug withdrawal syndrome [Recovering/Resolving]
